FAERS Safety Report 6581302-X (Version None)
Quarter: 2010Q1

REPORT INFORMATION
  Report Type: 
  Country: None (occurrence: None)
  Receive Date: 20100215
  Receipt Date: 20100205
  Transmission Date: 20100710
  Serious: Yes (Hospitalization)
  Sender: FDA-Public Use
  Company Number: JP-ELI_LILLY_AND_COMPANY-JP201001002042

PATIENT
  Sex: Female
  Weight: 56 kg

DRUGS (10)
  1. SOMATROPIN [Suspect]
     Indication: GROWTH HORMONE DEFICIENCY
     Dosage: 0.2 MG, DAILY (1/D)
     Route: 058
     Dates: start: 20080703, end: 20090930
  2. THYRADIN S [Concomitant]
     Indication: SECONDARY HYPOTHYROIDISM
     Dosage: 25 UG, DAILY (1/D)
     Route: 048
     Dates: start: 20061025, end: 20081015
  3. THYRADIN S [Concomitant]
     Dosage: 37.5 UG, DAILY (1/D)
     Route: 048
     Dates: start: 20081016
  4. CORTRIL [Concomitant]
     Indication: SECONDARY ADRENOCORTICAL INSUFFICIENCY
     Dosage: 15 MG, DAILY (1/D)
     Route: 048
     Dates: start: 20061025
  5. OLMETEC [Concomitant]
     Indication: HYPERTENSION
     Dosage: 10 MG, DAILY (1/D)
     Route: 048
     Dates: start: 20070315
  6. LIPITOR [Concomitant]
     Indication: HYPERLIPIDAEMIA
     Dosage: 5 MG, DAILY (1/D)
     Route: 048
     Dates: start: 20080131
  7. PURSENNID [Concomitant]
     Indication: CONSTIPATION
     Dosage: 24 MG, DAILY (1/D)
     Route: 048
     Dates: start: 20061121
  8. MYSLEE [Concomitant]
     Indication: INSOMNIA
     Dosage: 5 MG, DAILY (1/D)
     Route: 048
     Dates: start: 20061121
  9. MUCOSTA [Concomitant]
     Indication: GASTRITIS
     Dosage: 300 MG, DAILY (1/D)
     Route: 048
     Dates: start: 20061121
  10. ZOMIG [Concomitant]
     Indication: MIGRAINE
     Dosage: 2.5 MG, DAILY (1/D)
     Route: 048
     Dates: start: 20090219

REACTIONS (1)
  - RENAL CELL CARCINOMA [None]
